FAERS Safety Report 6042105-8 (Version None)
Quarter: 2009Q1

REPORT INFORMATION
  Report Type: 
  Country: None (occurrence: None)
  Receive Date: 20090116
  Receipt Date: 20090108
  Transmission Date: 20090719
  Serious: No
  Sender: FDA-Public Use
  Company Number: PHHY2008DE30366

PATIENT
  Age: 70 Year
  Sex: Male

DRUGS (1)
  1. VOLTAREN [Suspect]

REACTIONS (1)
  - CARDIAC DISORDER [None]
